FAERS Safety Report 4835899-8 (Version None)
Quarter: 2005Q4

REPORT INFORMATION
  Report Type: 
  Country: None (occurrence: None)
  Receive Date: 20051118
  Receipt Date: 20051107
  Transmission Date: 20060501
  Serious: Yes (Hospitalization)
  Sender: FDA-Public Use
  Company Number: 219283

PATIENT
  Age: 48 Year
  Sex: Male

DRUGS (3)
  1. RAPTIVA [Suspect]
     Indication: PSORIASIS
     Dosage: 0.7 MG/KG, 1/WEEK, SUBCUTANEOUS
     Route: 058
  2. BUDESONIDE [Concomitant]
  3. FORMOTEROL (FORMOTEROL FUMARATE) [Concomitant]

REACTIONS (4)
  - BLOOD IMMUNOGLOBULIN E INCREASED [None]
  - DRUG ERUPTION [None]
  - EOSINOPHILIA [None]
  - NEURODERMATITIS [None]
